FAERS Safety Report 5564242-4 (Version None)
Quarter: 2007Q4

REPORT INFORMATION
  Report Type: 
  Country: None (occurrence: None)
  Receive Date: 20071212
  Receipt Date: 20071203
  Transmission Date: 20080405
  Serious: Yes (Death)
  Sender: FDA-Public Use
  Company Number: TCI2007A06317

PATIENT
  Age: 69 Year
  Sex: Female

DRUGS (9)
  1. CANDESARTAN CILEXETIL [Suspect]
     Indication: ESSENTIAL HYPERTENSION
     Dosage: 8 MG (8 MG,1 IN 1 D), PER ORAL
     Route: 048
     Dates: start: 20070219, end: 20070228
  2. CANDESARTAN CILEXETIL [Suspect]
     Indication: ESSENTIAL HYPERTENSION
     Dosage: 8 MG (8 MG,1 IN 1 D), PER ORAL
     Route: 048
     Dates: start: 20060925
  3. ACTOS [Suspect]
     Indication: TYPE 2 DIABETES MELLITUS
     Dosage: 15 MG (15 MG,1 IN 1 D)  PER ORAL
     Route: 048
     Dates: start: 20060523, end: 20070228
  4. AMARYL [Suspect]
     Indication: TYPE 2 DIABETES MELLITUS
     Dosage: 2 MG (2 MG,1 IN 1 D) PER ORAL
     Route: 048
     Dates: start: 20061006, end: 20070228
  5. NORVASC [Concomitant]
  6. GLYBURIDE [Concomitant]
  7. ADALAT CC [Concomitant]
  8. FAMOTIDINE [Concomitant]
  9. MERCAZOLE (THIAMAZOLE) [Concomitant]

REACTIONS (3)
  - BLOOD CHOLESTEROL DECREASED [None]
  - RHINORRHOEA [None]
  - THYROXINE FREE INCREASED [None]
